FAERS Safety Report 25920490 (Version 2)
Quarter: 2025Q4

REPORT INFORMATION
  Report Type: Report from Study
  Country: US (occurrence: US)
  Receive Date: 20251014
  Receipt Date: 20251226
  Transmission Date: 20260117
  Serious: Yes (Hospitalization, Other)
  Sender: ABBVIE
  Company Number: US-ABBVIE-6276002

PATIENT
  Sex: Female

DRUGS (1)
  1. SKYRIZI [Suspect]
     Active Substance: RISANKIZUMAB-RZAA
     Indication: Crohn^s disease
     Dosage: STARTED JAN 2023 OR JAN 2024
     Route: 058
     Dates: start: 202301

REACTIONS (6)
  - Pre-eclampsia [Not Recovered/Not Resolved]
  - Maternal exposure during pregnancy [Unknown]
  - Live birth [Unknown]
  - Fluid retention [Not Recovered/Not Resolved]
  - Peripartum cardiomyopathy [Not Recovered/Not Resolved]
  - Breech delivery [Recovered/Resolved]

NARRATIVE: CASE EVENT DATE: 20250827
